FAERS Safety Report 14300545 (Version 3)
Quarter: 2018Q2

REPORT INFORMATION
  Report Type: Report from Study
  Country: None (occurrence: AU)
  Receive Date: 20171219
  Receipt Date: 20180606
  Transmission Date: 20180711
  Serious: Yes (Other)
  Sender: FDA-Public Use
  Company Number: AU-ABBVIE-17K-008-1863533-00

PATIENT
  Sex: Male
  Weight: 91 kg

DRUGS (4)
  1. HUMIRA [Suspect]
     Active Substance: ADALIMUMAB
     Route: 058
     Dates: start: 2017
  2. METHOTREXATE. [Concomitant]
     Active Substance: METHOTREXATE
     Indication: PRODUCT USED FOR UNKNOWN INDICATION
     Route: 048
  3. HUMIRA [Suspect]
     Active Substance: ADALIMUMAB
     Route: 058
  4. HUMIRA [Suspect]
     Active Substance: ADALIMUMAB
     Indication: CROHN^S DISEASE
     Route: 058
     Dates: end: 2017

REACTIONS (9)
  - Anal fistula [Not Recovered/Not Resolved]
  - Drug effect incomplete [Unknown]
  - Drug specific antibody present [Recovered/Resolved]
  - Impaired quality of life [Unknown]
  - Proctalgia [Unknown]
  - Device expulsion [Unknown]
  - Fistula discharge [Unknown]
  - Drug level decreased [Not Recovered/Not Resolved]
  - Anal abscess [Unknown]
